FAERS Safety Report 16369480 (Version 1)
Quarter: 2019Q2

REPORT INFORMATION
  Report Type: Spontaneous
  Country: GB (occurrence: GB)
  Receive Date: 20190530
  Receipt Date: 20190530
  Transmission Date: 20190711
  Serious: Yes (Other)
  Sender: FDA-Public Use
  Company Number: GB-BIOGEN-2019BI00742682

PATIENT
  Age: 51 Year
  Sex: Female
  Weight: 63 kg

DRUGS (1)
  1. TECFIDERA [Suspect]
     Active Substance: DIMETHYL FUMARATE
     Indication: MULTIPLE SCLEROSIS
     Route: 048
     Dates: start: 20181001

REACTIONS (6)
  - Thirst [Recovered/Resolved with Sequelae]
  - Pollakiuria [Recovered/Resolved with Sequelae]
  - Abdominal discomfort [Unknown]
  - Urinary tract infection [Recovered/Resolved with Sequelae]
  - Dysuria [Unknown]
  - Nausea [Unknown]

NARRATIVE: CASE EVENT DATE: 20181001
